FAERS Safety Report 8842398 (Version 3)
Quarter: 2012Q4

REPORT INFORMATION
  Report Type: 
  Country: US (occurrence: None)
  Receive Date: 20121016
  Receipt Date: 20121102
  Transmission Date: 20130627
  Serious: Yes (Life-Threatening)
  Sender: FDA-Public Use
  Company Number: None

PATIENT
  Age: 43 Year
  Sex: Female
  Weight: 95.26 kg

DRUGS (2)
  1. KENALOG [Suspect]
     Indication: PLANTAR FASCIITIS
     Route: 030
     Dates: start: 20120821, end: 20120821
  2. ORAL CONTRACEPTIVE [Concomitant]

REACTIONS (4)
  - Lung infiltration [None]
  - Pulmonary thrombosis [None]
  - Thrombosis [None]
  - Product quality issue [None]
